FAERS Safety Report 25524619 (Version 1)
Quarter: 2025Q3

REPORT INFORMATION
  Report Type: Spontaneous
  Country: CH (occurrence: CH)
  Receive Date: 20250707
  Receipt Date: 20250707
  Transmission Date: 20251020
  Serious: Yes (Other)
  Sender: NOVARTIS
  Company Number: CH-002147023-NVSC2025CH106488

PATIENT

DRUGS (1)
  1. ILARIS [Suspect]
     Active Substance: CANAKINUMAB
     Indication: Pericarditis
     Dosage: 300 MG, Q4W
     Route: 065
     Dates: start: 2023

REACTIONS (2)
  - Pericarditis [Unknown]
  - Off label use [Unknown]
